FAERS Safety Report 25611074 (Version 1)
Quarter: 2025Q3

REPORT INFORMATION
  Report Type: Spontaneous
  Country: US (occurrence: US)
  Receive Date: 20250728
  Receipt Date: 20250728
  Transmission Date: 20251021
  Serious: Yes (Other)
  Sender: MYLAN
  Company Number: US-MYLANLABS-2025M1060878

PATIENT
  Age: 29 Year
  Sex: Female

DRUGS (16)
  1. TACROLIMUS [Suspect]
     Active Substance: TACROLIMUS
     Indication: Immunosuppressant drug therapy
  2. SPIRONOLACTONE [Suspect]
     Active Substance: SPIRONOLACTONE
     Indication: Ascites
  3. ENOXAPARIN [Suspect]
     Active Substance: ENOXAPARIN
     Indication: Budd-Chiari syndrome
  4. ENOXAPARIN [Suspect]
     Active Substance: ENOXAPARIN
     Indication: Cerebral venous sinus thrombosis
  5. RAVULIZUMAB [Suspect]
     Active Substance: RAVULIZUMAB
     Indication: PNH clone increased
  6. RUXOLITINIB [Suspect]
     Active Substance: RUXOLITINIB
     Indication: Polycythaemia vera
  7. HEPARIN [Suspect]
     Active Substance: HEPARIN SODIUM
     Indication: Budd-Chiari syndrome
  8. HEPARIN [Suspect]
     Active Substance: HEPARIN SODIUM
     Indication: Cerebral venous sinus thrombosis
  9. RIVAROXABAN [Concomitant]
     Active Substance: RIVAROXABAN
     Indication: Budd-Chiari syndrome
  10. RIVAROXABAN [Concomitant]
     Active Substance: RIVAROXABAN
     Indication: Thrombosis prophylaxis
  11. ECULIZUMAB [Concomitant]
     Active Substance: ECULIZUMAB
     Indication: Paroxysmal nocturnal haemoglobinuria
  12. HYDROXYUREA [Concomitant]
     Active Substance: HYDROXYUREA
     Indication: Polycythaemia vera
  13. WARFARIN [Concomitant]
     Active Substance: WARFARIN
     Indication: Budd-Chiari syndrome
  14. WARFARIN [Concomitant]
     Active Substance: WARFARIN
     Indication: Cerebral venous sinus thrombosis
  15. APIXABAN [Concomitant]
     Active Substance: APIXABAN
     Indication: Budd-Chiari syndrome
  16. APIXABAN [Concomitant]
     Active Substance: APIXABAN
     Indication: Cerebral venous sinus thrombosis

REACTIONS (3)
  - Drug ineffective [Unknown]
  - Maternal exposure during pregnancy [Recovered/Resolved]
  - Normal newborn [Recovered/Resolved]
